FAERS Safety Report 10183603 (Version 1)
Quarter: 2014Q2

REPORT INFORMATION
  Report Type: Spontaneous
  Country: TR (occurrence: TR)
  Receive Date: 20140520
  Receipt Date: 20140520
  Transmission Date: 20141212
  Serious: Yes (Hospitalization)
  Sender: FDA-Public Use
  Company Number: TR-ALEXION PHARMACEUTICALS INC.-A201401854

PATIENT
  Sex: 0

DRUGS (4)
  1. SOLIRIS 300MG [Suspect]
     Indication: HAEMOLYTIC URAEMIC SYNDROME
     Dosage: 600 MG, QW
     Route: 042
     Dates: start: 20140305, end: 20140312
  2. SOLIRIS 300MG [Suspect]
     Dosage: 300 MG, Q2W
     Route: 042
     Dates: start: 20140312, end: 20140507
  3. VANCOMYCIN [Concomitant]
     Indication: PRODUCT USED FOR UNKNOWN INDICATION
     Route: 065
  4. CEFTRIAXONE [Concomitant]
     Indication: PRODUCT USED FOR UNKNOWN INDICATION
     Route: 065

REACTIONS (5)
  - Infection [Not Recovered/Not Resolved]
  - Pyrexia [Unknown]
  - Convulsion [Unknown]
  - White blood cell count increased [Unknown]
  - C-reactive protein increased [Unknown]
